FAERS Safety Report 6522345-1 (Version None)
Quarter: 2009Q4

REPORT INFORMATION
  Report Type: 
  Country: None (occurrence: None)
  Receive Date: 20091230
  Receipt Date: 20091221
  Transmission Date: 20100525
  Serious: Yes (Hospitalization)
  Sender: FDA-Public Use
  Company Number: B0621822A

PATIENT
  Sex: Female

DRUGS (1)
  1. ACICLOVIR [Suspect]
     Dosage: 750MG THREE TIMES PER DAY
     Route: 048
     Dates: start: 20091125, end: 20091201

REACTIONS (3)
  - HALLUCINATION, AUDITORY [None]
  - HALLUCINATION, VISUAL [None]
  - MALAISE [None]
